FAERS Safety Report 11509480 (Version 3)
Quarter: 2015Q4

REPORT INFORMATION
  Report Type: Spontaneous
  Country: JP (occurrence: JP)
  Receive Date: 20150915
  Receipt Date: 20151110
  Transmission Date: 20160304
  Serious: Yes (Hospitalization, Disabling)
  Sender: FDA-Public Use
  Company Number: JP-B.I. PHARMACEUTICALS,INC./RIDGEFIELD-2015-BI-49532NB

PATIENT
  Age: 62 Year
  Sex: Male
  Weight: 60.5 kg

DRUGS (7)
  1. LANSOPRAZOLE OD [Concomitant]
     Active Substance: LANSOPRAZOLE
     Indication: PROPHYLAXIS
     Dosage: 15 MG
     Route: 048
     Dates: start: 20141221
  2. PITAVASTATIN CA [Concomitant]
     Indication: DYSLIPIDAEMIA
     Dosage: 2 MG
     Route: 048
     Dates: start: 20141221
  3. TRAZENTA [Suspect]
     Active Substance: LINAGLIPTIN
     Indication: DIABETES MELLITUS
     Dosage: 5 MG
     Route: 048
     Dates: start: 20141221, end: 20150903
  4. COMPLAVIN [Suspect]
     Active Substance: ASPIRIN\CLOPIDOGREL BISULFATE
     Indication: ACUTE MYOCARDIAL INFARCTION
     Route: 048
     Dates: start: 201501, end: 20150903
  5. SULBENICILLIN SODIUM [Concomitant]
     Active Substance: SULBENICILLIN SODIUM
     Indication: PNEUMONIA BACTERIAL
     Dosage: 3 G
     Route: 042
     Dates: start: 20150826, end: 20150827
  6. CARVEDILOL. [Concomitant]
     Active Substance: CARVEDILOL
     Indication: ACUTE MYOCARDIAL INFARCTION
     Dosage: 5 MG
     Route: 048
     Dates: start: 20141221
  7. SULBENICILLIN SODIUM [Concomitant]
     Active Substance: SULBENICILLIN SODIUM
     Route: 042
     Dates: start: 20150828, end: 20150902

REACTIONS (2)
  - Interstitial lung disease [Recovered/Resolved with Sequelae]
  - Pneumonia bacterial [Not Recovered/Not Resolved]

NARRATIVE: CASE EVENT DATE: 201508
